FAERS Safety Report 16589573 (Version 1)
Quarter: 2019Q3

REPORT INFORMATION
  Report Type: Spontaneous
  Country: FR (occurrence: FR)
  Receive Date: 20190718
  Receipt Date: 20190718
  Transmission Date: 20191004
  Serious: Yes (Hospitalization)
  Sender: FDA-Public Use
  Company Number: FR-ACCORD-138880

PATIENT
  Age: 69 Year
  Sex: Female
  Weight: 53 kg

DRUGS (6)
  1. SPASFON (PHLOROGLUCINOL;TRIMETHYLPHLOROGLUCINOL) [Concomitant]
     Active Substance: PHLOROGLUCINOL\1,3,5-TRIMETHOXYBENZENE
     Route: 048
  2. VEPESIDE [Suspect]
     Active Substance: ETOPOSIDE
     Indication: PANCREATIC CARCINOMA
     Dosage: C1 153 MG/JOUR PENDANT 3 JOURS
     Route: 041
     Dates: start: 20190515, end: 20190517
  3. ACUPAN [Concomitant]
     Active Substance: NEFOPAM HYDROCHLORIDE
  4. CARBOPLATIN. [Suspect]
     Active Substance: CARBOPLATIN
     Indication: PANCREATIC CARCINOMA
     Dosage: C1
     Route: 041
     Dates: start: 20190515, end: 20190515
  5. IMOVANE [Concomitant]
     Active Substance: ZOPICLONE
     Dosage: STRENGTH: 7,5 MG, DIVISIBLE COATED TABLET
     Route: 048
  6. PRAZEPAM [Concomitant]
     Active Substance: PRAZEPAM
     Route: 048

REACTIONS (3)
  - Febrile bone marrow aplasia [Recovered/Resolved]
  - Chronic kidney disease [Recovered/Resolved]
  - Off label use [Unknown]

NARRATIVE: CASE EVENT DATE: 20190524
